FAERS Safety Report 4674356-9 (Version None)
Quarter: 2005Q2

REPORT INFORMATION
  Report Type: 
  Country: None (occurrence: None)
  Receive Date: 20050526
  Receipt Date: 20050511
  Transmission Date: 20051028
  Serious: Yes (Hospitalization)
  Sender: FDA-Public Use
  Company Number: GBWYE664112MAY05

PATIENT
  Sex: Female
  Weight: 57 kg

DRUGS (8)
  1. ENBREL [Suspect]
     Indication: RHEUMATOID ARTHRITIS
     Route: 058
     Dates: start: 20040203
  2. RABEPRAZOLE SODIUM [Concomitant]
     Route: 065
  3. FERROUS SULFATE TAB [Concomitant]
     Route: 065
  4. FRUSEMIDE [Concomitant]
     Route: 065
  5. DICLOFENAC SODIUM [Concomitant]
     Route: 065
  6. TRAMADOL [Concomitant]
     Route: 065
  7. PARACETAMOL [Concomitant]
     Route: 065
  8. CODEINE PHOSPHATE [Concomitant]
     Route: 065

REACTIONS (2)
  - ATRIOVENTRICULAR BLOCK [None]
  - DIZZINESS [None]
